FAERS Safety Report 14679699 (Version 1)
Quarter: 2018Q1

REPORT INFORMATION
  Report Type: Spontaneous
  Country: IT (occurrence: IT)
  Receive Date: 20180326
  Receipt Date: 20180326
  Transmission Date: 20180509
  Serious: Yes (Other)
  Sender: FDA-Public Use
  Company Number: IT-SA-2018SA040451

PATIENT
  Age: 48 Year
  Sex: Female

DRUGS (1)
  1. TUBERTEST [Suspect]
     Active Substance: TUBERCULIN PURIFIED PROTEIN DERIVATIVE
     Indication: TUBERCULIN TEST
     Route: 058
     Dates: start: 20171127, end: 20171127

REACTIONS (15)
  - Arthralgia [Not Recovered/Not Resolved]
  - Presyncope [Recovered/Resolved]
  - Infection [Not Recovered/Not Resolved]
  - Mobility decreased [Not Recovered/Not Resolved]
  - Pain [Recovered/Resolved]
  - Malaise [Recovered/Resolved]
  - Muscular weakness [Recovered/Resolved]
  - Joint swelling [Not Recovered/Not Resolved]
  - Incorrect route of drug administration [Unknown]
  - Muscle rigidity [Not Recovered/Not Resolved]
  - Night sweats [Recovered/Resolved]
  - Fibromyalgia [Unknown]
  - Back pain [Recovering/Resolving]
  - Pyrexia [Recovered/Resolved]
  - Overdose [Unknown]

NARRATIVE: CASE EVENT DATE: 20171130
